FAERS Safety Report 19421197 (Version 1)
Quarter: 2021Q2

REPORT INFORMATION
  Report Type: Spontaneous
  Country: AU (occurrence: AU)
  Receive Date: 20210615
  Receipt Date: 20210615
  Transmission Date: 20210717
  Serious: Yes (Hospitalization)
  Sender: FDA-Public Use
  Company Number: AU-HALOZYME THERAPEUTICS, INC.-2021-AU-HYL-01300

PATIENT

DRUGS (3)
  1. LIGNOCAINE [LIDOCAINE] [Suspect]
     Active Substance: LIDOCAINE
     Dosage: 2 PERCENT
  2. HYLENEX RECOMBINANT [Suspect]
     Active Substance: HYALURONIDASE (HUMAN RECOMBINANT)
     Dosage: 300 IU INTERNATIONAL UNIT(S)
  3. ROPIVACAINE. [Suspect]
     Active Substance: ROPIVACAINE HYDROCHLORIDE
     Dosage: 1 PERCENT

REACTIONS (1)
  - Orbital compartment syndrome [Not Recovered/Not Resolved]
